FAERS Safety Report 7761224-9 (Version None)
Quarter: 2011Q3

REPORT INFORMATION
  Report Type: 
  Country: None (occurrence: None)
  Receive Date: 20110920
  Receipt Date: 20110909
  Transmission Date: 20111222
  Serious: Yes (Other)
  Sender: FDA-Public Use
  Company Number: PHHY2011MY80955

PATIENT
  Age: 54 Year
  Sex: Male

DRUGS (1)
  1. LOSARTAN POTASSIUM [Suspect]
     Dosage: 25 MG, UNK

REACTIONS (1)
  - PARADOXICAL PRESSOR RESPONSE [None]
